FAERS Safety Report 25353760 (Version 2)
Quarter: 2025Q2

REPORT INFORMATION
  Report Type: Report from Study
  Country: US (occurrence: US)
  Receive Date: 20250523
  Receipt Date: 20250610
  Transmission Date: 20250717
  Serious: Yes (Hospitalization)
  Sender: BAYER HEALTHCARE PHARMACEUTICALS INC.
  Company Number: US-BAYER-2025A063974

PATIENT
  Age: 63 Year
  Sex: Female

DRUGS (4)
  1. ADEMPAS [Suspect]
     Active Substance: RIOCIGUAT
     Indication: Pulmonary arterial hypertension
  2. ADEMPAS [Suspect]
     Active Substance: RIOCIGUAT
     Indication: Pulmonary arterial hypertension
     Dosage: 2.5 MG, TID
     Route: 048
     Dates: start: 202407
  3. VELETRI [Concomitant]
     Active Substance: EPOPROSTENOL
  4. OPSUMIT [Concomitant]
     Active Substance: MACITENTAN

REACTIONS (3)
  - Pneumonia [None]
  - Intensive care [None]
  - Abdominal distension [None]

NARRATIVE: CASE EVENT DATE: 20250507
